FAERS Safety Report 9216188 (Version 1)
Quarter: 2013Q2

REPORT INFORMATION
  Report Type: Report from Study
  Country: CA (occurrence: CA)
  Receive Date: 20130408
  Receipt Date: 20130408
  Transmission Date: 20140414
  Serious: Yes (Death, Hospitalization, Other)
  Sender: FDA-Public Use
  Company Number: CA-SANOFI-AVENTIS-2013SA010547

PATIENT
  Age: 86 Year
  Sex: Male
  Weight: 59.3 kg

DRUGS (10)
  1. DOCETAXEL [Suspect]
     Indication: PROSTATE CANCER
     Dosage: (105 MG,1 IN 3 WK),INTRAVENOUS
     Route: 042
     Dates: start: 20120314, end: 20120621
  2. INVESTIGATIONAL DRUG [Suspect]
     Indication: PROSTATE CANCER
     Dosage: (480 MG,1 IN 1 WK),INTRAVENOUS
     Route: 042
     Dates: start: 20120307, end: 20120621
  3. ERGOCALCIFEROL [Concomitant]
     Indication: OSTEOPOROSIS PROPHYLAXIS
     Dates: start: 2011
  4. DEXAMETHASONE [Concomitant]
     Indication: PROPHYLAXIS
     Dosage: (PE/POST CHEMO)
     Route: 048
     Dates: start: 20120314
  5. PREDNISONE [Concomitant]
     Indication: NEOPLASM MALIGNANT
     Route: 048
     Dates: start: 2011
  6. CALCIUM [Concomitant]
     Indication: OSTEOPOROSIS PROPHYLAXIS
     Dosage: 8 TABLETS
     Route: 048
     Dates: start: 2011
  7. ALENDRONATE SODIUM [Concomitant]
     Indication: OSTEOPOROSIS PROPHYLAXIS
     Dates: start: 2011
  8. GOSERELIN [Concomitant]
     Dosage: Q 3 MONTHS
     Dates: start: 2011
  9. LOPERAMIDE [Concomitant]
     Indication: DIARRHOEA
     Route: 048
     Dates: start: 201203
  10. OTHER AGENTS FOR LOCAL ORAL TREATMENT [Concomitant]
     Indication: MUCOSAL INFLAMMATION
     Dosage: 15-30 CC (AS REQUIRED)
     Dates: start: 20120403

REACTIONS (5)
  - Cardiac failure congestive [Fatal]
  - Myocardial infarction [Fatal]
  - Dehydration [Not Recovered/Not Resolved]
  - Thrombocytopenia [Unknown]
  - Sepsis [Unknown]
